FAERS Safety Report 9656861 (Version 2)
Quarter: 2013Q4

REPORT INFORMATION
  Report Type: Spontaneous
  Country: KR (occurrence: KR)
  Receive Date: 20131030
  Receipt Date: 20131030
  Transmission Date: 20140711
  Serious: Yes (Death)
  Sender: FDA-Public Use
  Company Number: KR-PFIZER INC-2013095356

PATIENT
  Age: 48 Year
  Sex: Male

DRUGS (9)
  1. TIGECYCLINE [Suspect]
     Dosage: 100 MG, 2X/DAY
     Route: 042
     Dates: start: 20130222
  2. FLUCONAZOLE [Concomitant]
     Indication: ANTIFUNGAL TREATMENT
     Dosage: 100 MG, DAILY
     Route: 042
     Dates: start: 20130222
  3. FREAMINE [Concomitant]
     Indication: SUPPLEMENTATION THERAPY
     Dosage: UNK
     Route: 042
     Dates: start: 20130125, end: 20130225
  4. MUTERAN [Concomitant]
     Indication: PRODUCTIVE COUGH
     Dosage: 1800 MG, DAILY
     Route: 042
     Dates: start: 20130221
  5. MUTERAN [Concomitant]
     Indication: ANTITUSSIVE THERAPY
  6. MECCOL [Concomitant]
     Indication: ABDOMINAL PAIN UPPER
     Dosage: 30 MG, DAILY
     Route: 042
     Dates: start: 20130107, end: 20130228
  7. HEPA-MERZ [Concomitant]
     Indication: METABOLIC DISORDER
     Dosage: 1000 MG, DAILY
     Route: 042
     Dates: start: 20130222
  8. CURAN [Concomitant]
     Indication: PEPTIC ULCER
     Dosage: 100 MG, DAILY
     Route: 042
     Dates: start: 20130215
  9. ATIVAN [Concomitant]
     Indication: SEDATIVE THERAPY
     Dosage: 2 MG, DAILY
     Route: 042
     Dates: start: 20130224, end: 20130224

REACTIONS (1)
  - Sepsis [Fatal]
